FAERS Safety Report 6370632-2 (Version None)
Quarter: 2009Q3

REPORT INFORMATION
  Report Type: 
  Country: None (occurrence: None)
  Receive Date: 20090923
  Receipt Date: 20090909
  Transmission Date: 20100115
  Serious: Yes (Hospitalization)
  Sender: FDA-Public Use
  Company Number: DE-MYLANLABS-2009S1015833

PATIENT
  Age: 52 Year
  Weight: 100 kg

DRUGS (14)
  1. PREDNISOLONE [Suspect]
     Indication: PYREXIA
     Dosage: 250MG OVER 2 DAYS
     Route: 042
  2. PREDNISOLONE [Suspect]
     Indication: VASCULITIS
     Dosage: 250MG OVER 2 DAYS
     Route: 042
  3. PREDNISOLONE [Suspect]
     Dosage: WITH DOSAGE REDUCTION
     Route: 048
  4. PREDNISOLONE [Suspect]
     Dosage: WITH DOSAGE REDUCTION
     Route: 048
  5. PREDNISOLONE [Suspect]
     Dosage: MAINTENANCE DOSE
  6. PREDNISOLONE [Suspect]
     Dosage: MAINTENANCE DOSE
  7. AZATHIOPRINE [Suspect]
     Indication: VASCULITIS
  8. METHOTREXATE [Concomitant]
     Indication: VASCULITIS
  9. PANTOPRAZOLE SODIUM [Concomitant]
  10. BISOPROLOL [Concomitant]
  11. RAMIPRIL [Concomitant]
  12. FUROSEMIDE [Concomitant]
  13. LEKOVIT CA [Concomitant]
     Dosage: 400 IU + 1.25 G/DAY
  14. PHENPROCOUMON [Concomitant]
     Dosage: AIMED AT INR OF 2-3

REACTIONS (2)
  - MYOPATHY [None]
  - PYREXIA [None]
